FAERS Safety Report 19868999 (Version 2)
Quarter: 2021Q4

REPORT INFORMATION
  Report Type: Report from Study
  Country: AT (occurrence: AT)
  Receive Date: 20210923
  Receipt Date: 20211210
  Transmission Date: 20220303
  Serious: Yes (Hospitalization, Other)
  Sender: FDA-Public Use
  Company Number: AT-CELLTRION INC.-2021AT008282

PATIENT

DRUGS (19)
  1. TRASTUZUMAB [Suspect]
     Active Substance: TRASTUZUMAB
     Indication: Breast cancer metastatic
     Dosage: 288.2 MG, EVERY 4 WEEKS (MOST RECENT DOSE PRIOR TO THE EVENT: 19/DEC/2018)
     Route: 042
     Dates: start: 20181128
  2. TRASTUZUMAB [Suspect]
     Active Substance: TRASTUZUMAB
     Dosage: 288.2 MG, EVERY 4 WEEKS
     Route: 042
     Dates: start: 20181219
  3. DENOSUMAB [Suspect]
     Active Substance: DENOSUMAB
     Indication: Breast cancer metastatic
     Dosage: 120 MG, EVERY 4 WEEKS (MOST RECENT DOSE PRIOR TO AE /JAN/2021)
     Route: 058
     Dates: start: 20181106
  4. LETROZOLE [Suspect]
     Active Substance: LETROZOLE
     Indication: Breast cancer metastatic
     Dosage: 2.5 MG, DAILY
     Route: 048
     Dates: start: 20181121
  5. PANTOPRAZOLE SODIUM [Concomitant]
     Active Substance: PANTOPRAZOLE SODIUM
     Dosage: ONGOING = CHECKED
  6. ACETAMINOPHEN [Concomitant]
     Active Substance: ACETAMINOPHEN
     Dosage: UNK
     Dates: start: 20181219, end: 20181219
  7. NEBIVOLOL HYDROCHLORIDE [Concomitant]
     Active Substance: NEBIVOLOL HYDROCHLORIDE
  8. RILMENIDINE [Concomitant]
     Active Substance: RILMENIDINE
     Dosage: ONGOING = CHECKED
  9. RANITIDINE HYDROCHLORIDE [Concomitant]
     Active Substance: RANITIDINE HYDROCHLORIDE
     Dosage: ONGOING = CHECKED
  10. CANDESARTAN CILEXETIL AND HYDROCHLOROTHIAZIDE [Concomitant]
     Active Substance: CANDESARTAN CILEXETIL\HYDROCHLOROTHIAZIDE
  11. SIMVASTATIN [Concomitant]
     Active Substance: SIMVASTATIN
     Dosage: ONGOING = CHECKED
  12. VITAMINS WITH MINERALS [Concomitant]
     Active Substance: MINERALS\VITAMINS
     Dosage: ONGOING = CHECKED
  13. CALMOLAN [Concomitant]
     Dosage: ONGOING = CHECKED
  14. TRAMADOL [Concomitant]
     Active Substance: TRAMADOL
     Dosage: ONGOING = CHECKED
     Dates: start: 20201015
  15. ASCORBIC ACID;CALCIUM PHOSPHATE;CITRIC ACID;COLECALCIFEROL [Concomitant]
     Dosage: ONGOING = CHECKED
     Dates: start: 20201015
  16. ADAMON [TRAMADOL HYDROCHLORIDE] [Concomitant]
     Dosage: ONGOING = CHECKED
     Dates: start: 20201015
  17. MIRTAZAPINE [Concomitant]
     Active Substance: MIRTAZAPINE
     Dosage: ONGOING = CHECKED
     Dates: start: 20201015
  18. PREGABALIN ACC [Concomitant]
     Dosage: ONGOING = CHECKED
     Dates: start: 20201015
  19. CANDESARTAN [Concomitant]
     Active Substance: CANDESARTAN
     Dosage: ONGOING = CHECKED
     Dates: start: 20201015

REACTIONS (3)
  - Infusion related reaction [Recovered/Resolved]
  - Osteonecrosis of jaw [Recovered/Resolved]
  - Off label use [Unknown]

NARRATIVE: CASE EVENT DATE: 20181128
